FAERS Safety Report 11830990 (Version 3)
Quarter: 2016Q1

REPORT INFORMATION
  Report Type: Report from Study
  Country: US (occurrence: US)
  Receive Date: 20151214
  Receipt Date: 20160111
  Transmission Date: 20160525
  Serious: Yes (Other)
  Sender: FDA-Public Use
  Company Number: US-AMGEN-USASL2015131481

PATIENT
  Age: 73 Year
  Sex: Female

DRUGS (1)
  1. ENBREL [Suspect]
     Active Substance: ETANERCEPT
     Indication: PSORIASIS
     Dosage: 50 MG, 2 TIMES/WK
     Route: 065
     Dates: start: 20150604

REACTIONS (10)
  - Urethral dilatation [Unknown]
  - Walking aid user [Unknown]
  - Urinary retention [Unknown]
  - Pain in extremity [Unknown]
  - Inappropriate schedule of drug administration [Unknown]
  - Arthralgia [Unknown]
  - Back pain [Unknown]
  - Psoriasis [Unknown]
  - Biopsy bladder [Unknown]
  - Back disorder [Unknown]

NARRATIVE: CASE EVENT DATE: 2015
